FAERS Safety Report 12185104 (Version 1)
Quarter: 2016Q1

REPORT INFORMATION
  Report Type: Spontaneous
  Country: FR (occurrence: FR)
  Receive Date: 20160316
  Receipt Date: 20160316
  Transmission Date: 20160526
  Serious: Yes (Other)
  Sender: FDA-Public Use
  Company Number: PHHY2016FR033820

PATIENT
  Age: 34 Year
  Sex: Male

DRUGS (4)
  1. TEGRETOL LP [Suspect]
     Active Substance: CARBAMAZEPINE
     Indication: EPILEPSY
     Dosage: 600 MG, QD (FROM BEFORE 2012)
     Route: 048
     Dates: end: 20150624
  2. DEPAKINE CRONO [Concomitant]
     Active Substance: VALPROIC ACID
     Indication: EPILEPSY
     Dosage: 4 DF, QD
     Route: 048
  3. ZEBINIX [Interacting]
     Active Substance: ESLICARBAZEPINE ACETATE
     Indication: EPILEPSY
     Dosage: 800 MG, QD
     Route: 048
     Dates: start: 20150625, end: 20150715
  4. LAMICTAL [Concomitant]
     Active Substance: LAMOTRIGINE
     Indication: EPILEPSY
     Dosage: 300 MG, QD, FROM BEFORE 2012UNK
     Route: 048

REACTIONS (3)
  - Drug interaction [Unknown]
  - Agitation [Recovered/Resolved]
  - Psychomotor hyperactivity [Recovered/Resolved]

NARRATIVE: CASE EVENT DATE: 20150710
